FAERS Safety Report 7395967-6 (Version None)
Quarter: 2011Q2

REPORT INFORMATION
  Report Type: 
  Country: None (occurrence: None)
  Receive Date: 20110406
  Receipt Date: 20110328
  Transmission Date: 20111010
  Serious: No
  Sender: FDA-Public Use
  Company Number: US-BIOGENIDEC-2011BI011810

PATIENT
  Sex: Female

DRUGS (1)
  1. AVONEX [Suspect]
     Indication: MULTIPLE SCLEROSIS
     Route: 030

REACTIONS (6)
  - HYPERTENSION [None]
  - HEADACHE [None]
  - MOANING [None]
  - FEELING HOT [None]
  - VIITH NERVE PARALYSIS [None]
  - CHILLS [None]
